FAERS Safety Report 12630254 (Version 1)
Quarter: 2016Q3

REPORT INFORMATION
  Report Type: Spontaneous
  Country: US (occurrence: US)
  Receive Date: 20160808
  Receipt Date: 20160808
  Transmission Date: 20161109
  Serious: No
  Sender: FDA-Public Use
  Company Number: US-BEH-2016071691

PATIENT
  Age: 67 Year
  Sex: Male
  Weight: 81.41 kg

DRUGS (4)
  1. KCENTRA [Suspect]
     Active Substance: COAGULATION FACTOR IX HUMAN\COAGULATION FACTOR VII HUMAN\COAGULATION FACTOR X HUMAN\PROTEIN C\PROTEIN S HUMAN\PROTHROMBIN
     Indication: PROCOAGULANT THERAPY
     Dosage: 2219 IU,ONCE
     Route: 065
     Dates: start: 20160218, end: 20160218
  2. OFIRMEV [Concomitant]
     Active Substance: ACETAMINOPHEN
     Indication: PRODUCT USED FOR UNKNOWN INDICATION
     Dosage: 1000 MG, TOT
     Route: 042
     Dates: start: 20160218, end: 20160218
  3. AQUA MEPHYTON [Concomitant]
     Indication: PROCOAGULANT THERAPY
     Dosage: 10 MG, TOT
     Route: 042
     Dates: start: 20160218, end: 20160218
  4. WARFARIN [Concomitant]
     Active Substance: WARFARIN

REACTIONS (1)
  - Rash [Recovered/Resolved]

NARRATIVE: CASE EVENT DATE: 20160218
